FAERS Safety Report 23079734 (Version 1)
Quarter: 2023Q4

REPORT INFORMATION
  Report Type: Spontaneous
  Country: US (occurrence: None)
  Receive Date: 20231017
  Receipt Date: 20231017
  Transmission Date: 20240109
  Serious: Yes (Hospitalization)
  Sender: FDA-Public Use
  Company Number: None

PATIENT
  Age: 59 Year
  Sex: Male

DRUGS (1)
  1. PRAVASTATIN SODIUM [Suspect]
     Active Substance: PRAVASTATIN SODIUM
     Dosage: OTHER FREQUENCY : OTHER;?
     Route: 048
     Dates: start: 20220601, end: 20220803

REACTIONS (8)
  - Arthralgia [None]
  - Myalgia [None]
  - Myalgia [None]
  - Intervertebral disc protrusion [None]
  - Neck pain [None]
  - Arthralgia [None]
  - Pain in extremity [None]
  - Condition aggravated [None]

NARRATIVE: CASE EVENT DATE: 20220810
